FAERS Safety Report 13007598 (Version 1)
Quarter: 2016Q4

REPORT INFORMATION
  Report Type: Spontaneous
  Country: US (occurrence: US)
  Receive Date: 20161207
  Receipt Date: 20161207
  Transmission Date: 20170207
  Serious: Yes (Other)
  Sender: FDA-Public Use
  Company Number: US-BAUSCH-BL-2015-030773

PATIENT
  Age: 78 Year
  Sex: Male

DRUGS (3)
  1. BRIMONIDINE [Suspect]
     Active Substance: BRIMONIDINE TARTRATE
     Indication: OPEN ANGLE GLAUCOMA
     Route: 047
  2. BRIMONIDINE [Suspect]
     Active Substance: BRIMONIDINE TARTRATE
     Indication: SUPERIOR CORNEAL EPITHELIAL ARCUATE LESION
  3. LATANOPROST. [Concomitant]
     Active Substance: LATANOPROST
     Indication: OPEN ANGLE GLAUCOMA
     Dosage: ONCE AT NIGHT IN BOTH EYES

REACTIONS (4)
  - Hypersensitivity [Recovered/Resolved with Sequelae]
  - Allergic keratitis [Recovered/Resolved with Sequelae]
  - Lacrimation decreased [Recovered/Resolved with Sequelae]
  - Punctate keratitis [Recovered/Resolved with Sequelae]
